FAERS Safety Report 6177766-6 (Version None)
Quarter: 2009Q2

REPORT INFORMATION
  Report Type: 
  Country: None (occurrence: None)
  Receive Date: 20090501
  Receipt Date: 20090501
  Transmission Date: 20091009
  Serious: Yes (Hospitalization)
  Sender: FDA-Public Use
  Company Number: None

PATIENT
  Age: 50 Year
  Sex: Female
  Weight: 90 kg

DRUGS (14)
  1. WARFARIN SODIUM [Suspect]
     Indication: DEEP VEIN THROMBOSIS
     Dosage: 3MG PO QD
     Route: 048
  2. WARFARIN SODIUM [Suspect]
     Indication: SCINTIGRAPHY
     Dosage: 3MG PO QD
     Route: 048
  3. WARFARIN SODIUM [Suspect]
     Indication: SYSTEMIC LUPUS ERYTHEMATOSUS
     Dosage: 3MG PO QD
     Route: 048
  4. PLAQUENIL [Concomitant]
  5. SIMVASTATIN [Concomitant]
  6. ANCEF [Concomitant]
  7. INSULIN [Concomitant]
  8. LANSOPRAZOLE [Concomitant]
  9. PREDNISONE [Concomitant]
  10. PHOSLO [Concomitant]
  11. NORVASC [Concomitant]
  12. METOPROLOL [Concomitant]
  13. CINACALCET [Concomitant]
  14. ASPIRIN [Concomitant]

REACTIONS (4)
  - CATHETER RELATED INFECTION [None]
  - INTERNATIONAL NORMALISED RATIO INCREASED [None]
  - MUSCLE HAEMORRHAGE [None]
  - STAPHYLOCOCCAL INFECTION [None]
